FAERS Safety Report 13526098 (Version 1)
Quarter: 2017Q2

REPORT INFORMATION
  Report Type: Spontaneous
  Country: US (occurrence: US)
  Receive Date: 20170508
  Receipt Date: 20170508
  Transmission Date: 20170830
  Serious: No
  Sender: FDA-Public Use
  Company Number: None

PATIENT
  Age: 68 Year
  Sex: Female

DRUGS (1)
  1. ENOXAPARIN SYR 40MG/0.4ML [Suspect]
     Active Substance: ENOXAPARIN
     Dosage: DOSE AMOUNT - XARELTO AND POTASSIUM

REACTIONS (3)
  - Gastric haemorrhage [None]
  - Drug hypersensitivity [None]
  - Nephrolithiasis [None]

NARRATIVE: CASE EVENT DATE: 20161230
